FAERS Safety Report 11002689 (Version 1)
Quarter: 2015Q2

REPORT INFORMATION
  Report Type: Spontaneous
  Country: US (occurrence: US)
  Receive Date: 20150408
  Receipt Date: 20150408
  Transmission Date: 20150821
  Serious: Yes (Other)
  Sender: FDA-Public Use
  Company Number: US-ABBVIE-15P-163-1370298-00

PATIENT
  Sex: Male

DRUGS (2)
  1. TESTIM [Suspect]
     Active Substance: TESTOSTERONE
     Indication: ANDROGEN REPLACEMENT THERAPY
     Route: 065
     Dates: start: 20090710, end: 20140508
  2. ANDROGEL [Suspect]
     Active Substance: TESTOSTERONE
     Indication: ANDROGEN REPLACEMENT THERAPY
     Route: 062
     Dates: start: 20090710, end: 20140508

REACTIONS (8)
  - Cerebral disorder [Unknown]
  - Anhedonia [Unknown]
  - Fear [Unknown]
  - Cerebrovascular accident [Unknown]
  - Social problem [Unknown]
  - Loss of employment [Unknown]
  - Physical disability [Unknown]
  - Economic problem [Unknown]

NARRATIVE: CASE EVENT DATE: 20140331
